FAERS Safety Report 17521257 (Version 5)
Quarter: 2021Q3

REPORT INFORMATION
  Report Type: Spontaneous
  Country: US (occurrence: US)
  Receive Date: 20200310
  Receipt Date: 20210929
  Transmission Date: 20211014
  Serious: Yes (Other)
  Sender: FDA-Public Use
  Company Number: US-PFIZER INC-2020096627

PATIENT
  Age: 67 Year
  Sex: Female
  Weight: 54 kg

DRUGS (9)
  1. IBRANCE [Suspect]
     Active Substance: PALBOCICLIB
     Indication: INFLAMMATORY CARCINOMA OF THE BREAST
     Dosage: 125 MG, CYCLIC (TAKE ONE DAILY FOR 3 WEEKS BY MOUTH AND THEN OFF FOR ONE WEEK )
     Route: 048
     Dates: start: 20190715
  2. CALCIUM CITRATE [Concomitant]
     Active Substance: CALCIUM CITRATE
     Indication: BONE DISORDER
     Dosage: 315 MG, DAILY
     Route: 048
  3. VITAMIN B1 [Suspect]
     Active Substance: THIAMINE HYDROCHLORIDE
     Dosage: 250 MG, DAILY
     Route: 048
  4. IBRANCE [Suspect]
     Active Substance: PALBOCICLIB
     Dosage: 100 MG CYCLIC (1 TABLET BY MOUTH DAILY FOR 3 WEEKS AND OFF 1 WEEK EVERY MONTH)
     Route: 048
     Dates: start: 20190729
  5. LIDOCAINE AND PRILOCAINE [Concomitant]
     Active Substance: LIDOCAINE\PRILOCAINE
     Indication: HYPOAESTHESIA
     Dosage: UNK (LIDOCAINE 2.5%/PRILOCAINE 2.5% CREAM)
  6. AMLODIPINE [Concomitant]
     Active Substance: AMLODIPINE BESYLATE
     Indication: BLOOD PRESSURE ABNORMAL
     Dosage: 5 MG, DAILY
     Route: 048
  7. XGEVA [Concomitant]
     Active Substance: DENOSUMAB
     Dosage: UNK
  8. VITAMIN D3 [Concomitant]
     Active Substance: CHOLECALCIFEROL
     Indication: NUTRITIONAL SUPPLEMENTATION
     Dosage: 1000 IU, DAILY
     Route: 048
  9. ANASTROZOLE. [Concomitant]
     Active Substance: ANASTROZOLE
     Indication: ANTIOESTROGEN THERAPY
     Dosage: 1 MG, 1X/DAY
     Route: 048
     Dates: start: 20190729

REACTIONS (10)
  - Rash [Unknown]
  - Red blood cell count decreased [Not Recovered/Not Resolved]
  - Erythema [Recovering/Resolving]
  - Neuropathy peripheral [Unknown]
  - Hypertension [Unknown]
  - Skin disorder [Unknown]
  - Neoplasm progression [Unknown]
  - Lymphadenopathy [Unknown]
  - White blood cell count decreased [Not Recovered/Not Resolved]
  - Breast pain [Recovering/Resolving]

NARRATIVE: CASE EVENT DATE: 201907
